FAERS Safety Report 10266288 (Version 1)
Quarter: 2014Q2

REPORT INFORMATION
  Report Type: Spontaneous
  Country: US (occurrence: US)
  Receive Date: 20140627
  Receipt Date: 20140627
  Transmission Date: 20141212
  Serious: Yes (Hospitalization)
  Sender: FDA-Public Use
  Company Number: US-PFIZER INC-2014175400

PATIENT
  Age: 28 Year
  Sex: Male
  Weight: 72.56 kg

DRUGS (3)
  1. XANAX [Suspect]
     Indication: ANXIETY
     Dosage: UNK, 1X/DAY
     Dates: start: 201406, end: 201406
  2. XANAX [Suspect]
     Dosage: UNK, 1X/DAY
     Dates: start: 201406, end: 201406
  3. ZOLOFT [Suspect]
     Dosage: UNK
     Dates: start: 201406, end: 201406

REACTIONS (9)
  - Drug withdrawal syndrome [Unknown]
  - Feeling abnormal [Unknown]
  - Discomfort [Unknown]
  - Asthenia [Unknown]
  - Nausea [Unknown]
  - Vomiting [Unknown]
  - Diarrhoea [Unknown]
  - Heart rate increased [Unknown]
  - Intentional product misuse [Recovered/Resolved]
